FAERS Safety Report 22223378 (Version 1)
Quarter: 2023Q2

REPORT INFORMATION
  Report Type: Spontaneous
  Country: AT (occurrence: AT)
  Receive Date: 20230418
  Receipt Date: 20230418
  Transmission Date: 20230722
  Serious: Yes (Other)
  Sender: FDA-Public Use
  Company Number: None

PATIENT
  Age: 27 Year
  Sex: Male

DRUGS (1)
  1. IOPROMIDE [Suspect]
     Active Substance: IOPROMIDE
     Indication: Computerised tomogram
     Route: 042
     Dates: start: 202209

REACTIONS (5)
  - Pruritus [Unknown]
  - Paraesthesia oral [Unknown]
  - Urticaria [Unknown]
  - Type I hypersensitivity [Unknown]
  - Erythema [Unknown]

NARRATIVE: CASE EVENT DATE: 20220901
